FAERS Safety Report 9965434 (Version 1)
Quarter: 2014Q1

REPORT INFORMATION
  Report Type: Report from Study
  Country: US (occurrence: US)
  Receive Date: 20140305
  Receipt Date: 20140305
  Transmission Date: 20141002
  Serious: No
  Sender: FDA-Public Use
  Company Number: US-ABBVIE-13P-163-1126512-00

PATIENT
  Age: 43 Year
  Sex: Female

DRUGS (6)
  1. HUMIRA [Suspect]
     Indication: PSORIATIC ARTHROPATHY
     Dates: start: 20130504, end: 20130604
  2. HUMIRA [Suspect]
     Dates: start: 20130712
  3. AVENOX PEN [Concomitant]
     Indication: MULTIPLE SCLEROSIS
     Dosage: 30MCG/0.5ML 1 INJECTION
  4. NEURONTIN [Concomitant]
     Indication: PAIN
     Dosage: 300MG 1-2 DAILY AS NEEDED
  5. BYSTOLIC [Concomitant]
     Indication: HYPERTENSION
  6. NORVASC [Concomitant]
     Indication: HYPERTENSION

REACTIONS (3)
  - Uveitis [Not Recovered/Not Resolved]
  - Therapeutic response unexpected [Not Recovered/Not Resolved]
  - Musculoskeletal stiffness [Recovered/Resolved]
